FAERS Safety Report 7749895-4 (Version None)
Quarter: 2011Q3

REPORT INFORMATION
  Report Type: 
  Country: None (occurrence: None)
  Receive Date: 20110907
  Receipt Date: 20110823
  Transmission Date: 20111222
  Serious: Yes (Hospitalization)
  Sender: FDA-Public Use
  Company Number: 2009SP023611

PATIENT
  Age: 19 Year
  Sex: Female
  Weight: 54.4316 kg

DRUGS (1)
  1. NUVARING [Suspect]
     Indication: CONTRACEPTION
     Dates: start: 20050801, end: 20070901

REACTIONS (9)
  - DEEP VEIN THROMBOSIS [None]
  - WOUND SECRETION [None]
  - DYSPNOEA [None]
  - POST THROMBOTIC SYNDROME [None]
  - ANXIETY [None]
  - CHEST PAIN [None]
  - LYMPHATIC DISORDER [None]
  - INCISION SITE PAIN [None]
  - ILIAC VEIN OCCLUSION [None]
